FAERS Safety Report 7979488-5 (Version None)
Quarter: 2011Q4

REPORT INFORMATION
  Report Type: 
  Country: None (occurrence: None)
  Receive Date: 20111214
  Receipt Date: 20111212
  Transmission Date: 20120403
  Serious: Yes (Death)
  Sender: FDA-Public Use
  Company Number: PHEH2011US011411

PATIENT
  Sex: Male

DRUGS (15)
  1. SINGULAIR [Concomitant]
  2. SULFAMETHOXAZOLE AND TRIMETHOPRIM DOUBLE STRENGTH [Concomitant]
  3. CELEBREX [Concomitant]
     Dosage: 100 MG, UNK
  4. CRESTOR [Concomitant]
  5. VITAMIN D [Concomitant]
  6. CENTRUM [Concomitant]
  7. SPIRIVA [Concomitant]
  8. FISH OIL [Concomitant]
  9. AFINITOR [Suspect]
     Dosage: 10 MG, DAILY
     Route: 048
  10. ADVAIR DISKUS 100/50 [Concomitant]
  11. DISKU AER [Concomitant]
  12. TORSEMIDE [Concomitant]
     Dosage: 10 MG, UNK
  13. ACETAMINOPHEN [Concomitant]
  14. LEVOTHYROXINE SODIUM [Concomitant]
     Dosage: 200 UG, UNK
  15. MILK THISTLE CAP [Concomitant]

REACTIONS (1)
  - DEATH [None]
